APPROVED DRUG PRODUCT: FLUOXETINE HYDROCHLORIDE
Active Ingredient: FLUOXETINE HYDROCHLORIDE
Strength: EQ 20MG BASE/5ML
Dosage Form/Route: SOLUTION;ORAL
Application: A075920 | Product #001
Applicant: BAJAJ MEDICAL LLC
Approved: Jan 29, 2002 | RLD: No | RS: No | Type: DISCN